FAERS Safety Report 5373243-0 (Version None)
Quarter: 2007Q2

REPORT INFORMATION
  Report Type: 
  Country: None (occurrence: None)
  Receive Date: 20070628
  Receipt Date: 20070614
  Transmission Date: 20071010
  Serious: Yes (Other)
  Sender: FDA-Public Use
  Company Number: PHBS2007JP06978

PATIENT
  Age: 86 Year
  Sex: Male

DRUGS (1)
  1. LAMISIL [Suspect]
     Indication: NAIL TINEA
     Route: 048

REACTIONS (4)
  - ENANTHEMA [None]
  - EOSINOPHIL COUNT INCREASED [None]
  - PEMPHIGOID [None]
  - RASH [None]
